FAERS Safety Report 24604058 (Version 1)
Quarter: 2024Q4

REPORT INFORMATION
  Report Type: Spontaneous
  Country: FR (occurrence: FR)
  Receive Date: 20241111
  Receipt Date: 20241111
  Transmission Date: 20250115
  Serious: Yes (Hospitalization)
  Sender: NOVARTIS
  Company Number: None

PATIENT
  Age: 67 Year
  Sex: Female
  Weight: 37 kg

DRUGS (16)
  1. ENTRESTO [Interacting]
     Active Substance: SACUBITRIL\VALSARTAN
     Indication: Cardiac failure
     Dosage: 1 DOSAGE FORM, QD ( COMPRIM? PELLICUL?  )
     Route: 048
     Dates: end: 20240924
  2. BISOPROLOL [Interacting]
     Active Substance: BISOPROLOL\BISOPROLOL FUMARATE
     Indication: Cardiac failure
     Dosage: 2.5 MG, QD
     Route: 048
     Dates: end: 20240924
  3. SPIRONOLACTONE [Interacting]
     Active Substance: SPIRONOLACTONE
     Indication: Cardiac failure
     Dosage: 12.5 MG, QD
     Route: 048
     Dates: end: 20240924
  4. FUROSEMIDE [Interacting]
     Active Substance: FUROSEMIDE
     Indication: Cardiac failure
     Dosage: 20 MG, QD
     Route: 048
     Dates: end: 20240924
  5. DAPAGLIFLOZIN [Interacting]
     Active Substance: DAPAGLIFLOZIN
     Indication: Cardiac failure
     Dosage: 10 MG, QD (COMPRIM? PELLICUL?  )
     Route: 048
     Dates: end: 20240924
  6. SKENAN [Interacting]
     Active Substance: MORPHINE SULFATE
     Indication: Pain
     Dosage: 30 MG, QD (L.P. 30 MG, MICROGRANULES ? LIB?RATION PROLONG?E EN G?LULE  )
     Route: 048
     Dates: end: 20240924
  7. GABAPENTIN [Interacting]
     Active Substance: GABAPENTIN
     Indication: Pain
     Dosage: 100 MG, Q8H
     Route: 048
     Dates: end: 20240924
  8. ALPRAZOLAM [Interacting]
     Active Substance: ALPRAZOLAM
     Indication: Anxiety
     Dosage: 0.5 MG, QD
     Route: 048
     Dates: end: 20240924
  9. POTASSIUM CHLORIDE [Interacting]
     Active Substance: POTASSIUM CHLORIDE
     Indication: Hypokalaemia
     Dosage: 1 DOSAGE FORM, QD
     Route: 048
     Dates: end: 20240924
  10. VOGALENE [Concomitant]
     Active Substance: METOPIMAZINE
     Indication: Nausea
     Dosage: 1 DOSAGE FORM, Q8H (LYOPHILISAT ORAL  )
     Route: 048
     Dates: end: 20240924
  11. ESOMEPRAZOLE [Concomitant]
     Active Substance: ESOMEPRAZOLE
     Indication: Gastrooesophageal reflux disease
     Dosage: 40 MG, QD (COMPRIM? GASTRO-R?SISTANT  )
     Route: 048
     Dates: end: 20240924
  12. GAVISCON [Concomitant]
     Active Substance: ALUMINUM HYDROXIDE\MAGNESIUM CARBONATE
     Indication: Gastrooesophageal reflux disease
     Dosage: 1 DOSAGE FORM
     Route: 048
  13. LACTULOSE\PARAFFIN [Concomitant]
     Active Substance: LACTULOSE\PARAFFIN
     Indication: Constipation prophylaxis
     Dosage: 2 DOSAGE FORM, Q8H (EL?E ORALE EN POT  )
     Route: 048
  14. NORMACOL [Concomitant]
     Active Substance: HERBALS\KARAYA GUM
     Indication: Constipation prophylaxis
     Dosage: 1 DOSAGE FORM
     Route: 048
  15. CLOPIDOGREL [Concomitant]
     Active Substance: CLOPIDOGREL BISULFATE
     Indication: Cardiovascular event prophylaxis
     Dosage: 75 MG, QD
     Route: 048
     Dates: end: 20240924
  16. Orocal vitamine d3 [Concomitant]
     Indication: Osteoporosis
     Dosage: 1 DOSAGE FORM, QD (COMPRIM? ? SUCER  )
     Route: 048
     Dates: end: 20240924

REACTIONS (5)
  - Acute respiratory distress syndrome [Recovered/Resolved]
  - Acute kidney injury [Recovered/Resolved]
  - Hyperkalaemia [Recovered/Resolved]
  - Altered state of consciousness [Recovered/Resolved]
  - Drug interaction [Recovered/Resolved]

NARRATIVE: CASE EVENT DATE: 20240924
